FAERS Safety Report 13039943 (Version 1)
Quarter: 2016Q4

REPORT INFORMATION
  Report Type: Spontaneous
  Country: HR (occurrence: HR)
  Receive Date: 20161219
  Receipt Date: 20161219
  Transmission Date: 20170207
  Serious: Yes (Life-Threatening, Hospitalization, Other)
  Sender: FDA-Public Use
  Company Number: HR-TEVA-719598ACC

PATIENT
  Age: 42 Year
  Sex: Female

DRUGS (1)
  1. TRAMACUR [Suspect]
     Active Substance: TRAMADOL
     Dosage: APPROXIMATELY 50 TBL, UNSPECIFIED FORM OF ADMIN
     Route: 048
     Dates: start: 20160411

REACTIONS (3)
  - Suicide attempt [Unknown]
  - Somnolence [Unknown]
  - Intentional overdose [Unknown]

NARRATIVE: CASE EVENT DATE: 20160412
